FAERS Safety Report 7901742-3 (Version None)
Quarter: 2011Q4

REPORT INFORMATION
  Report Type: 
  Country: None (occurrence: None)
  Receive Date: 20111108
  Receipt Date: 20111101
  Transmission Date: 20120403
  Serious: Yes (Death, Hospitalization, Disabling, Other)
  Sender: FDA-Public Use
  Company Number: GB-CELGENEUS-167-21880-11091963

PATIENT
  Age: 64 Year
  Sex: Male

DRUGS (8)
  1. REVLIMID [Suspect]
     Dosage: 5 MILLIGRAM
     Route: 048
  2. ASPIRIN [Concomitant]
     Indication: PROPHYLAXIS
     Route: 065
  3. DEXAMETHASONE [Concomitant]
     Dosage: 40 MILLIGRAM
     Route: 065
  4. REVLIMID [Suspect]
     Dosage: 2.5 MILLIGRAM
     Route: 048
     Dates: start: 20080116
  5. REVLIMID [Suspect]
     Dosage: 10 MILLIGRAM
     Route: 048
     Dates: end: 20100401
  6. NEUPOGEN [Concomitant]
     Route: 065
  7. LMWH [Concomitant]
     Route: 065
  8. ALLOPURINOL [Concomitant]
     Route: 065

REACTIONS (7)
  - ABDOMINAL DISTENSION [None]
  - HYDRONEPHROSIS [None]
  - RICHTER'S SYNDROME [None]
  - LYMPHADENOPATHY [None]
  - RENAL FAILURE ACUTE [None]
  - INFLUENZA LIKE ILLNESS [None]
  - PANCYTOPENIA [None]
